FAERS Safety Report 7361083-2 (Version None)
Quarter: 2011Q1

REPORT INFORMATION
  Report Type: 
  Country: None (occurrence: None)
  Receive Date: 20110318
  Receipt Date: 20110204
  Transmission Date: 20110831
  Serious: No
  Sender: FDA-Public Use
  Company Number: US-BAYER-2011-012803

PATIENT
  Sex: Female

DRUGS (3)
  1. ALEVE (CAPLET) [Suspect]
     Indication: PAIN
     Dosage: 220 MG, UNK
  2. CELEBREX [Concomitant]
     Indication: PAIN
  3. VOLTAREN-XR [Concomitant]
     Indication: PAIN
     Dosage: 100XR

REACTIONS (1)
  - PAIN [None]
